FAERS Safety Report 20850603 (Version 1)
Quarter: 2022Q2

REPORT INFORMATION
  Report Type: Spontaneous
  Country: US (occurrence: None)
  Receive Date: 20220518
  Receipt Date: 20220518
  Transmission Date: 20220720
  Serious: Yes (Hospitalization, Other)
  Sender: FDA-Public Use
  Company Number: None

PATIENT
  Age: 53 Year
  Sex: Female
  Weight: 58.5 kg

DRUGS (1)
  1. IMIQUIMOD [Suspect]
     Active Substance: IMIQUIMOD
     Indication: Actinic keratosis
     Dosage: OTHER QUANTITY : .25 GRAM;?OTHER FREQUENCY : TWICE A WEEK;?
     Route: 061
     Dates: start: 20170728, end: 20170915

REACTIONS (7)
  - Scar [None]
  - Chemical burn [None]
  - Basal cell carcinoma [None]
  - Skin disorder [None]
  - Lip disorder [None]
  - Nasal disorder [None]
  - Plastic surgery to the face [None]

NARRATIVE: CASE EVENT DATE: 20211115
